FAERS Safety Report 6707372-3 (Version None)
Quarter: 2010Q2

REPORT INFORMATION
  Report Type: 
  Country: None (occurrence: None)
  Receive Date: 20100503
  Receipt Date: 20100422
  Transmission Date: 20101027
  Serious: Yes (Other)
  Sender: FDA-Public Use
  Company Number: JP-PFIZER INC-2010048970

PATIENT
  Age: 63 Year
  Sex: Female

DRUGS (7)
  1. XALATAN [Suspect]
     Indication: GLAUCOMA
     Dosage: ONCE A DAY
     Route: 047
  2. FLUMETHOLON [Suspect]
     Indication: GLAUCOMA
     Dosage: 4X/DAY
     Route: 047
  3. TRUSOPT [Suspect]
     Indication: GLAUCOMA
     Dosage: 4X/DAY
     Route: 047
  4. TIMOPTOL-XE [Suspect]
     Indication: GLAUCOMA
     Dosage: DAILY
     Route: 047
  5. HYALEIN [Suspect]
     Dosage: 4X/DAY
     Route: 047
  6. NORVASC [Concomitant]
     Indication: HYPERTENSION
     Dosage: UNK
     Route: 048
  7. MICARDIS [Concomitant]
     Indication: HYPERTENSION
     Dosage: UNK
     Route: 048

REACTIONS (2)
  - ARRHYTHMIA [None]
  - BRADYCARDIA [None]
